FAERS Safety Report 10255771 (Version 1)
Quarter: 2014Q2

REPORT INFORMATION
  Report Type: Spontaneous
  Country: US (occurrence: None)
  Receive Date: 20140620
  Receipt Date: 20140620
  Transmission Date: 20141212
  Serious: Yes (Hospitalization)
  Sender: FDA-Public Use
  Company Number: 2390154

PATIENT
  Age: 56 Year
  Sex: Male

DRUGS (3)
  1. BLEOMYCIN SULFATE [Suspect]
     Indication: GERM CELL CANCER
     Dosage: CYCLICAL
  2. ETOPOSIDE [Suspect]
     Indication: GERM CELL CANCER
     Dosage: CYCLICAL
  3. CISPLATIN [Suspect]
     Indication: GERM CELL CANCER
     Dosage: CYCLICAL

REACTIONS (17)
  - Fatigue [None]
  - Nausea [None]
  - Vomiting [None]
  - Diarrhoea [None]
  - Headache [None]
  - Febrile neutropenia [None]
  - Tachycardia [None]
  - Cellulitis [None]
  - Confusional state [None]
  - Encephalopathy [None]
  - Generalised tonic-clonic seizure [None]
  - Apnoea [None]
  - Cerebral infarction [None]
  - CSF test abnormal [None]
  - Cryptococcus test positive [None]
  - Cryptococcosis [None]
  - Pericarditis [None]
